FAERS Safety Report 13382149 (Version 1)
Quarter: 2017Q1

REPORT INFORMATION
  Report Type: Report from Study
  Country: JP (occurrence: JP)
  Receive Date: 20170329
  Receipt Date: 20170329
  Transmission Date: 20170429
  Serious: Yes (Hospitalization, Disabling, Other)
  Sender: FDA-Public Use
  Company Number: PHHY2011JP125277

PATIENT
  Age: 67 Year
  Sex: Female
  Weight: 42 kg

DRUGS (7)
  1. XELODA [Suspect]
     Active Substance: CAPECITABINE
     Dosage: 2400 MG, QD
     Route: 048
     Dates: start: 20100106, end: 20100413
  2. LOXONIN [Concomitant]
     Active Substance: LOXOPROFEN SODIUM
     Indication: HYPOAESTHESIA
     Dosage: UNK
     Route: 048
  3. PYDOXAL [Concomitant]
     Active Substance: PYRIDOXAL
     Indication: PALMAR-PLANTAR ERYTHRODYSAESTHESIA SYNDROME
     Dosage: UNK
     Route: 048
     Dates: start: 20091208, end: 20100413
  4. TYKERB [Suspect]
     Active Substance: LAPATINIB DITOSYLATE
     Dosage: 1250 MG, QD
     Route: 048
     Dates: start: 20100119, end: 20100413
  5. XELODA [Suspect]
     Active Substance: CAPECITABINE
     Indication: PRODUCT USED FOR UNKNOWN INDICATION
     Dosage: 2400 MG, QD
     Route: 048
     Dates: start: 20091209, end: 20091219
  6. SELBEX [Concomitant]
     Active Substance: TEPRENONE
     Indication: HYPOAESTHESIA
     Dosage: UNK
     Route: 048
  7. TYKERB [Suspect]
     Active Substance: LAPATINIB DITOSYLATE
     Indication: BREAST CANCER
     Dosage: 1250 MG, QD
     Route: 048
     Dates: start: 20091209, end: 20091219

REACTIONS (7)
  - Renal impairment [Unknown]
  - Submandibular mass [Recovered/Resolved]
  - Hypertension [Unknown]
  - Eczema [Recovering/Resolving]
  - Stomatitis [Recovered/Resolved]
  - Cardiac failure [Recovered/Resolved]
  - Blood creatinine increased [Unknown]

NARRATIVE: CASE EVENT DATE: 20091218
